FAERS Safety Report 4710659-7 (Version None)
Quarter: 2005Q3

REPORT INFORMATION
  Report Type: 
  Country: None (occurrence: None)
  Receive Date: 20050707
  Receipt Date: 20050621
  Transmission Date: 20060218
  Serious: Yes (Hospitalization)
  Sender: FDA-Public Use
  Company Number: FR_050606674

PATIENT
  Age: 55 Year
  Sex: Female

DRUGS (6)
  1. ZYPREXA [Suspect]
     Indication: PSYCHOTIC DISORDER
     Dosage: 20 MG/1 DAY
     Dates: start: 20041214, end: 20041223
  2. TERCIAN (CYAMEMAZINE) [Concomitant]
  3. THERALENE (ALIMEMAZINE TARTRATE) [Concomitant]
  4. LITHIUM CARBONATE [Concomitant]
  5. LEPTICUR (TROPATEPINE HYDROCHLORIDE) [Concomitant]
  6. HALDOL (HALOPERIDOL DECANOATE) [Concomitant]

REACTIONS (12)
  - ABDOMINAL PAIN UPPER [None]
  - BLOOD PRESSURE SYSTOLIC DECREASED [None]
  - COLITIS [None]
  - CONFUSIONAL STATE [None]
  - DISTURBANCE IN ATTENTION [None]
  - FAECALOMA [None]
  - GASTROINTESTINAL GANGRENE [None]
  - GASTROINTESTINAL NECROSIS [None]
  - INTESTINAL ISCHAEMIA [None]
  - MULTI-ORGAN FAILURE [None]
  - SHOCK [None]
  - VOMITING [None]
